FAERS Safety Report 5809994-0 (Version None)
Quarter: 2008Q3

REPORT INFORMATION
  Report Type: 
  Country: None (occurrence: None)
  Receive Date: 20080708
  Receipt Date: 20070510
  Transmission Date: 20090109
  Serious: Yes (Other)
  Sender: FDA-Public Use
  Company Number: SPV1-2007-01859

PATIENT
  Age: 48 Year
  Sex: Male

DRUGS (3)
  1. PENTASA [Suspect]
     Indication: CROHN'S DISEASE
     Dosage: 1000 MG 3X'S DAILY, ORAL
     Route: 048
     Dates: start: 20061101, end: 20070101
  2. 6-MP(MERCAPOPURINE) [Suspect]
     Indication: CROHN'S DISEASE
     Dosage: 100 MG DAILY
     Dates: start: 19990101
  3. QUESTRAN [Concomitant]

REACTIONS (3)
  - HAEMATOCRIT DECREASED [None]
  - HAEMOGLOBIN DECREASED [None]
  - WHITE BLOOD CELL COUNT DECREASED [None]
